FAERS Safety Report 23942097 (Version 1)
Quarter: 2024Q2

REPORT INFORMATION
  Report Type: Spontaneous
  Country: HU (occurrence: HU)
  Receive Date: 20240605
  Receipt Date: 20240605
  Transmission Date: 20240715
  Serious: Yes (Other)
  Sender: FDA-Public Use
  Company Number: HU-002147023-NVSC2024HU115613

PATIENT
  Age: 70 Year
  Sex: Female

DRUGS (3)
  1. RIBOCICLIB [Suspect]
     Active Substance: RIBOCICLIB
     Indication: Breast neoplasm
     Dosage: UNK
     Route: 065
     Dates: start: 20220912, end: 2023
  2. FULVESTRANT [Concomitant]
     Active Substance: FULVESTRANT
     Indication: Breast neoplasm
     Dosage: UNK
     Route: 065
     Dates: start: 20220912, end: 2023
  3. XGEVA [Concomitant]
     Active Substance: DENOSUMAB
     Indication: Breast neoplasm
     Dosage: UNK
     Route: 065
     Dates: start: 20220912, end: 202308

REACTIONS (8)
  - Osteonecrosis [Unknown]
  - Pleural effusion [Unknown]
  - Malignant neoplasm progression [Unknown]
  - Breast neoplasm [Unknown]
  - Pleural thickening [Not Recovered/Not Resolved]
  - Hepatic mass [Unknown]
  - Toothache [Unknown]
  - Gingival atrophy [Unknown]

NARRATIVE: CASE EVENT DATE: 20230101
